FAERS Safety Report 7564656-7 (Version None)
Quarter: 2011Q2

REPORT INFORMATION
  Report Type: 
  Country: None (occurrence: None)
  Receive Date: 20110622
  Receipt Date: 20100823
  Transmission Date: 20111010
  Serious: Yes (Death)
  Sender: FDA-Public Use
  Company Number: US-MYLANLABS-2010S1014297

PATIENT
  Age: 73 Year
  Sex: Male

DRUGS (11)
  1. CLOZAPINE [Suspect]
     Route: 048
     Dates: start: 20100521
  2. CLOZAPINE [Suspect]
     Route: 048
     Dates: start: 20100521
  3. GALANTAMINE HYDROBROMIDE [Concomitant]
     Route: 048
  4. HYDROCODONE BITARTRATE AND ACETAMINOPHEN [Concomitant]
     Dosage: 5/500MG PRN
     Route: 048
  5. FUROSEMIDE [Concomitant]
     Route: 048
  6. ALPRAZOLAM [Concomitant]
     Route: 048
  7. NYSTAT [Concomitant]
     Dosage: SWISH/SWALLOW 1-2 TSP QID
  8. BENADRYL [Concomitant]
     Dosage: SWISH/SWALLOW 1-2TSP QID
  9. ALPRAZOLAM [Concomitant]
     Dosage: PRN
     Route: 048
  10. TRAZODONE HCL [Concomitant]
     Route: 048
  11. HYDROCORTISON /00415201/ [Concomitant]
     Dosage: SWISH/SWALLOW 1-2TSP QID

REACTIONS (1)
  - DEATH [None]
